FAERS Safety Report 19929492 (Version 1)
Quarter: 2021Q4

REPORT INFORMATION
  Report Type: Spontaneous
  Country: FR (occurrence: FR)
  Receive Date: 20211007
  Receipt Date: 20211007
  Transmission Date: 20220303
  Serious: Yes (Other)
  Sender: FDA-Public Use
  Company Number: FR-PFIZER INC-202101308685

PATIENT
  Age: 92 Year
  Sex: Male
  Weight: 70 kg

DRUGS (14)
  1. NOVATREX (METHOTREXATE) [Suspect]
     Active Substance: METHOTREXATE SODIUM
     Dosage: 2.5MG ON THURSDAY 4 CPS
  2. TOZINAMERAN [Concomitant]
     Active Substance: TOZINAMERAN
     Indication: COVID-19 immunisation
     Dosage: DOSE 2,SINGLE
     Route: 030
     Dates: start: 20210426, end: 20210426
  3. KARDEGIC [Concomitant]
     Active Substance: ASPIRIN DL-LYSINE
  4. BISOPROLOL [Concomitant]
     Active Substance: BISOPROLOL
     Dosage: 1.25 1 0 1
  5. CANDESARTAN [Concomitant]
     Active Substance: CANDESARTAN
  6. APIXABAN [Concomitant]
     Active Substance: APIXABAN
     Dosage: 2.5*2
  7. ATORVASTATIN [Concomitant]
     Active Substance: ATORVASTATIN
  8. PANTOPRAZOLE [Concomitant]
     Active Substance: PANTOPRAZOLE
  9. FINASTERIDE [Concomitant]
     Active Substance: FINASTERIDE
  10. TAMSULOSIN [Concomitant]
     Active Substance: TAMSULOSIN
  11. PRAZEPAM [Concomitant]
     Active Substance: PRAZEPAM
  12. MIANSERIN HYDROCHLORIDE [Concomitant]
     Active Substance: MIANSERIN HYDROCHLORIDE
  13. ACETAMINOPHEN [Concomitant]
     Active Substance: ACETAMINOPHEN
  14. CODEINE [Concomitant]
     Active Substance: CODEINE

REACTIONS (9)
  - Pancytopenia [Unknown]
  - Haemorrhage [Unknown]
  - Fibrin D dimer increased [Unknown]
  - Haemoglobin decreased [Unknown]
  - C-reactive protein increased [Unknown]
  - Aspartate aminotransferase increased [Unknown]
  - Gamma-glutamyltransferase increased [Unknown]
  - Blister [Unknown]
  - Petechiae [Unknown]

NARRATIVE: CASE EVENT DATE: 20210429
